FAERS Safety Report 8455824-0 (Version None)
Quarter: 2012Q2

REPORT INFORMATION
  Report Type: 
  Country: None (occurrence: None)
  Receive Date: 20120621
  Receipt Date: 20120620
  Transmission Date: 20120825
  Serious: Yes (Death, Hospitalization, Other)
  Sender: FDA-Public Use
  Company Number: FR-ABBOTT-12P-056-0922400-00

PATIENT
  Sex: Female

DRUGS (7)
  1. HUMIRA [Suspect]
     Indication: PSORIATIC ARTHROPATHY
     Dates: start: 20060101, end: 20111111
  2. PREDNISONE TAB [Concomitant]
     Indication: PSORIATIC ARTHROPATHY
     Dosage: 3MG DAILY
     Route: 048
  3. SINEMET [Concomitant]
     Indication: PARKINSON'S DISEASE
     Dosage: 10/100 MG
     Route: 048
  4. PROTON PUMP INHIBITORS [Concomitant]
     Indication: PRODUCT USED FOR UNKNOWN INDICATION
  5. TROSPIUM CHLORIDE [Concomitant]
     Indication: PRODUCT USED FOR UNKNOWN INDICATION
  6. ESCITALOPRAM [Concomitant]
     Indication: DEPRESSION
     Route: 048
     Dates: end: 20111118
  7. CEFTRIAXONE [Concomitant]
     Indication: PYELONEPHRITIS

REACTIONS (17)
  - THROMBOCYTOPENIA [None]
  - PYREXIA [None]
  - HYPERGAMMAGLOBULINAEMIA [None]
  - HEPATOTOXICITY [None]
  - INTERSTITIAL LUNG DISEASE [None]
  - DEPRESSION [None]
  - DIARRHOEA [None]
  - CELL DEATH [None]
  - COMA [None]
  - GENERAL PHYSICAL HEALTH DETERIORATION [None]
  - PYELONEPHRITIS [None]
  - GAIT DISTURBANCE [None]
  - WEIGHT DECREASED [None]
  - URINARY TRACT INFECTION ENTEROCOCCAL [None]
  - TUBERCULOSIS [None]
  - ERYSIPELAS [None]
  - HAEMOLYTIC ANAEMIA [None]
